FAERS Safety Report 23457169 (Version 1)
Quarter: 2024Q1

REPORT INFORMATION
  Report Type: Spontaneous
  Country: RU (occurrence: None)
  Receive Date: 20240130
  Receipt Date: 20240130
  Transmission Date: 20240410
  Serious: Yes (Other)
  Sender: FDA-Public Use
  Company Number: 2024A019587

PATIENT
  Age: 78 Year
  Sex: Female
  Weight: 86 kg

DRUGS (3)
  1. SYMBICORT [Suspect]
     Active Substance: BUDESONIDE\FORMOTEROL FUMARATE DIHYDRATE
     Indication: Asthma
     Dosage: SINGLE DOSE -329 MCG, 2 TIMES A DAY
     Route: 055
     Dates: start: 20230918, end: 20231014
  2. SPIRIVA RESPIMAT [Concomitant]
     Active Substance: TIOTROPIUM BROMIDE
     Indication: Asthma
     Dosage: SINGLE DOSE - 5 MCG
     Route: 055
     Dates: start: 202309
  3. SINGULAIR [Concomitant]
     Active Substance: MONTELUKAST SODIUM
     Indication: Asthma
     Dosage: SINGLE DOSE - 10 MG
     Route: 048
     Dates: start: 202309

REACTIONS (1)
  - Suffocation feeling [Recovered/Resolved]

NARRATIVE: CASE EVENT DATE: 20230918
